FAERS Safety Report 24753564 (Version 1)
Quarter: 2024Q4

REPORT INFORMATION
  Report Type: Report from Study
  Country: US (occurrence: US)
  Receive Date: 20241219
  Receipt Date: 20241219
  Transmission Date: 20250115
  Serious: Yes (Hospitalization)
  Sender: EISAI
  Company Number: US-Eisai-EC-2024-180887

PATIENT
  Age: 83 Year
  Sex: Male

DRUGS (4)
  1. LENVIMA [Suspect]
     Active Substance: LENVATINIB
     Indication: Thyroid cancer
     Route: 048
     Dates: start: 20240313, end: 20240707
  2. LENVIMA [Suspect]
     Active Substance: LENVATINIB
     Route: 048
     Dates: start: 20240812
  3. ELIQUIS [Concomitant]
     Active Substance: APIXABAN
     Dosage: DOSE AND FREQUENCY UNKNOWN
     Dates: start: 2024
  4. GABAPENTIN [Concomitant]
     Active Substance: GABAPENTIN
     Dosage: DOSE AND FREQUENCY UNKNOWN
     Dates: start: 2024

REACTIONS (3)
  - Urinary tract infection [Unknown]
  - Decreased appetite [Unknown]
  - Weight decreased [Unknown]

NARRATIVE: CASE EVENT DATE: 20240101
